FAERS Safety Report 8180115-5 (Version None)
Quarter: 2012Q1

REPORT INFORMATION
  Report Type: 
  Country: None (occurrence: None)
  Receive Date: 20120221
  Receipt Date: 20120207
  Transmission Date: 20120608
  Serious: Yes (Hospitalization)
  Sender: FDA-Public Use
  Company Number: AECAN201100370

PATIENT
  Age: 70 Year
  Sex: Male
  Weight: 182.3 kg

DRUGS (11)
  1. APRESOLINE [Concomitant]
  2. NEURONTIN [Concomitant]
  3. COLACE [Concomitant]
  4. NOVOLIN /01449801/ [Concomitant]
  5. AVELOX [Concomitant]
  6. NORVASC [Concomitant]
  7. TEVETEN /01679701/ [Concomitant]
  8. GAMUNEX [Suspect]
     Indication: IDIOPATHIC THROMBOCYTOPENIC PURPURA
     Dosage: 30 GM;QD;IV
     Route: 042
     Dates: start: 20060609
  9. GAMUNEX [Suspect]
  10. DIAMINE [Concomitant]
  11. LASIX [Concomitant]

REACTIONS (2)
  - PNEUMONIA [None]
  - HYPERTENSION [None]
